FAERS Safety Report 9522688 (Version 1)
Quarter: 2013Q1

REPORT INFORMATION
  Report Type: Spontaneous
  Country: US (occurrence: None)
  Receive Date: 20130305
  Receipt Date: 20130305
  Transmission Date: 20140127
  Serious: Yes (Other)
  Sender: FDA-Public Use
  Company Number: 163-21880-11110663

PATIENT
  Age: 58 Year
  Sex: Male
  Weight: 121.43 kg

DRUGS (13)
  1. REVLIMID (LENALIDOMIDE) (25 MILLIGRAM, CAPSULES) [Suspect]
     Indication: PLASMA CELL MYELOMA
     Dosage: 25 MG,  DAILY X 21 DAYS Q28 DAYS,  PO
     Route: 048
     Dates: start: 20111015, end: 20111018
  2. ASA (ACETYLSALICYLIC ACID) [Concomitant]
  3. WARFARIN (WARFARIN) [Concomitant]
  4. LORAZEPAM (LORAZEPAM) [Concomitant]
  5. SIMVASTATIN (SIMVASTATIN) [Concomitant]
  6. GABAPENTIN (GABAPENTIN) [Concomitant]
  7. GLIPIZIDE (GLIPIZIDE) [Concomitant]
  8. PIOGLITAZONE (PIOGLITAZONE) [Concomitant]
  9. METHYLPHENIDATE (METHYLPHENIDATE) [Concomitant]
  10. CYANOCOBALAMIN (CYANOCOBALAMIN) [Concomitant]
  11. METFORMIN (METFORMIN) [Concomitant]
  12. OMEPRAZOLE (OMEPRAZOLE) [Concomitant]
  13. VENLAFAXINE (VENLAFAXINE) [Concomitant]

REACTIONS (3)
  - Rash pruritic [None]
  - Joint warmth [None]
  - Erythema [None]
